FAERS Safety Report 12406251 (Version 1)
Quarter: 2016Q2

REPORT INFORMATION
  Report Type: Spontaneous
  Country: US (occurrence: US)
  Receive Date: 20160526
  Receipt Date: 20160526
  Transmission Date: 20160815
  Serious: No
  Sender: FDA-Public Use
  Company Number: US-APOTEX-2015AP014997

PATIENT

DRUGS (2)
  1. AMLODIPINE BESYLATE. [Suspect]
     Active Substance: AMLODIPINE BESYLATE
     Indication: MUSCLE SPASMS
     Dosage: 10 MG, PER DAY
     Route: 065
  2. VISMODEGIB [Concomitant]
     Active Substance: VISMODEGIB
     Indication: PROPHYLAXIS
     Dosage: 150 MG, PER DAY
     Route: 065

REACTIONS (1)
  - Dizziness [Unknown]
